FAERS Safety Report 6475516-7 (Version None)
Quarter: 2009Q4

REPORT INFORMATION
  Report Type: 
  Country: None (occurrence: None)
  Receive Date: 20091204
  Receipt Date: 20091127
  Transmission Date: 20100525
  Serious: Yes (Hospitalization, Other)
  Sender: FDA-Public Use
  Company Number: PHHY2009GB23449

PATIENT
  Sex: Female

DRUGS (2)
  1. EXJADE [Suspect]
     Indication: IRON OVERLOAD
     Dosage: 1125 MG/DAY
     Route: 048
     Dates: start: 20090302
  2. PENICILLIN V [Concomitant]
     Dosage: 250 MG, BID

REACTIONS (6)
  - ABDOMINAL DISTENSION [None]
  - ABDOMINAL PAIN UPPER [None]
  - FAECES DISCOLOURED [None]
  - NAUSEA [None]
  - SICKLE CELL ANAEMIA WITH CRISIS [None]
  - VOMITING [None]
